FAERS Safety Report 4768089-8 (Version None)
Quarter: 2005Q3

REPORT INFORMATION
  Report Type: 
  Country: None (occurrence: None)
  Receive Date: 20050912
  Receipt Date: 20050912
  Transmission Date: 20060218
  Serious: Yes (Death)
  Sender: FDA-Public Use
  Company Number: None

PATIENT
  Sex: Male
  Weight: 75 kg

DRUGS (1)
  1. CORDARONE [Suspect]
     Indication: ARRHYTHMIA
     Dosage: GIVEN IN 20 HOURS
     Dates: start: 20050810, end: 20050810

REACTIONS (3)
  - CARDIAC ARREST [None]
  - DYSPNOEA [None]
  - VOMITING [None]
